FAERS Safety Report 9185352 (Version 2)
Quarter: 2013Q2

REPORT INFORMATION
  Report Type: Spontaneous
  Country: DE (occurrence: None)
  Receive Date: 20130321
  Receipt Date: 20130401
  Transmission Date: 20140414
  Serious: Yes (Hospitalization)
  Sender: FDA-Public Use
  Company Number: DE-JNJFOC-20130307380

PATIENT
  Age: 79 Year
  Sex: Male
  Weight: 93.4 kg

DRUGS (4)
  1. DACOGEN [Suspect]
     Indication: ACUTE MYELOID LEUKAEMIA
     Route: 042
     Dates: start: 20130225, end: 20130301
  2. VALPROIC ACID [Suspect]
     Indication: ACUTE MYELOID LEUKAEMIA
     Dates: start: 20130302
  3. ATRA [Suspect]
     Indication: ACUTE MYELOID LEUKAEMIA
     Dates: start: 20130302, end: 201303
  4. MARCUMAR (PHENPROCOUMON) [Concomitant]

REACTIONS (3)
  - Haemorrhagic diathesis [None]
  - Thrombocytopenia [None]
  - Prothrombin time prolonged [None]
